FAERS Safety Report 19721006 (Version 1)
Quarter: 2021Q3

REPORT INFORMATION
  Report Type: Spontaneous
  Country: PT (occurrence: PT)
  Receive Date: 20210819
  Receipt Date: 20210819
  Transmission Date: 20211014
  Serious: Yes (Other)
  Sender: FDA-Public Use
  Company Number: PT-MYLANLABS-2021M1052155

PATIENT
  Age: 41 Year
  Sex: Female
  Weight: 56.6 kg

DRUGS (8)
  1. FENOFIBRATE. [Concomitant]
     Active Substance: FENOFIBRATE
     Indication: HYPERLIPIDAEMIA
     Dosage: 267 MILLIGRAM, QD
  2. METFORMIN [Suspect]
     Active Substance: METFORMIN HYDROCHLORIDE
     Indication: DIABETES MELLITUS MANAGEMENT
     Dosage: UNK
  3. PIOGLITAZONE. [Suspect]
     Active Substance: PIOGLITAZONE
     Indication: DIABETES MELLITUS MANAGEMENT
     Dosage: UNK, 30?45MG/DAY
  4. INSULIN [Concomitant]
     Active Substance: INSULIN NOS
     Indication: DIABETES MELLITUS MANAGEMENT
     Dosage: 154 INTERNATIONAL UNIT, QD
  5. INSULIN [Concomitant]
     Active Substance: INSULIN NOS
     Dosage: 13 INTERNATIONAL UNIT, QD
     Dates: start: 202012
  6. METRELEPTIN [Concomitant]
     Active Substance: METRELEPTIN
     Dosage: 5.8 MILLIGRAM, QD
     Dates: start: 202012
  7. INSULIN [Concomitant]
     Active Substance: INSULIN NOS
     Dosage: 24 INTERNATIONAL UNIT, QD
     Dates: start: 201903
  8. METRELEPTIN [Concomitant]
     Active Substance: METRELEPTIN
     Indication: HYPERLIPIDAEMIA
     Dosage: UNK
     Dates: start: 201906

REACTIONS (1)
  - Therapeutic product effect incomplete [Unknown]
